FAERS Safety Report 6641414-9 (Version None)
Quarter: 2010Q1

REPORT INFORMATION
  Report Type: 
  Country: None (occurrence: None)
  Receive Date: 20100318
  Receipt Date: 20100305
  Transmission Date: 20100710
  Serious: Yes (Other)
  Sender: FDA-Public Use
  Company Number: DE-BAYER-201017569GPV

PATIENT
  Age: 71 Year
  Sex: Female
  Weight: 55 kg

DRUGS (1)
  1. ASPIRIN PLUS C [Suspect]
     Indication: HEADACHE
     Route: 065
     Dates: start: 20100212, end: 20100213

REACTIONS (8)
  - ASTHENIA [None]
  - CIRCULATORY COLLAPSE [None]
  - DIZZINESS [None]
  - GAIT DISTURBANCE [None]
  - NAUSEA [None]
  - SYNCOPE [None]
  - VERTIGO [None]
  - VOMITING [None]
